FAERS Safety Report 22280792 (Version 3)
Quarter: 2023Q2

REPORT INFORMATION
  Report Type: Spontaneous
  Country: US (occurrence: US)
  Receive Date: 20230503
  Receipt Date: 20230623
  Transmission Date: 20230722
  Serious: No
  Sender: FDA-Public Use
  Company Number: US-JNJFOC-20230467344

PATIENT
  Age: 70 Year
  Sex: Male
  Weight: 111.23 kg

DRUGS (9)
  1. TREMFYA [Suspect]
     Active Substance: GUSELKUMAB
     Indication: Psoriatic arthropathy
     Route: 058
     Dates: start: 2021
  2. HYDROCHLOROTHIAZIDE [Concomitant]
     Active Substance: HYDROCHLOROTHIAZIDE
  3. ZETIA [Concomitant]
     Active Substance: EZETIMIBE
     Indication: Product used for unknown indication
  4. TRAMADOL [Concomitant]
     Active Substance: TRAMADOL
  5. DIAZEPAM [Concomitant]
     Active Substance: DIAZEPAM
  6. TIZANIDINE [Concomitant]
     Active Substance: TIZANIDINE
     Indication: Product used for unknown indication
  7. METHYLPREDNISOLONE [Concomitant]
     Active Substance: METHYLPREDNISOLONE
  8. DILTIAZEM [Concomitant]
     Active Substance: DILTIAZEM
  9. PRAZOSIN [Concomitant]
     Active Substance: PRAZOSIN

REACTIONS (7)
  - Injection site haemorrhage [Unknown]
  - Product quality issue [Unknown]
  - Product storage error [Unknown]
  - Poor quality product administered [Unknown]
  - Underdose [Unknown]
  - Night sweats [Unknown]
  - Nerve compression [Unknown]

NARRATIVE: CASE EVENT DATE: 20230428
